FAERS Safety Report 14512811 (Version 1)
Quarter: 2018Q1

REPORT INFORMATION
  Report Type: Spontaneous
  Country: US (occurrence: US)
  Receive Date: 20180209
  Receipt Date: 20180209
  Transmission Date: 20180509
  Serious: No
  Sender: FDA-Public Use
  Company Number: US-ALLERGAN-1709648US

PATIENT
  Age: 74 Year
  Sex: Female
  Weight: 58.5 kg

DRUGS (10)
  1. IRBESARTAN. [Concomitant]
     Active Substance: IRBESARTAN
     Dosage: 75 MG, QD
     Route: 048
  2. SYNTHROID [Concomitant]
     Active Substance: LEVOTHYROXINE SODIUM
     Indication: THYROID DISORDER
     Dosage: 150 ?G, QD
     Route: 048
  3. DILTIAZEM. [Concomitant]
     Active Substance: DILTIAZEM
     Dosage: 30 MG, QD
     Route: 048
  4. LANSOPRAZOLE. [Concomitant]
     Active Substance: LANSOPRAZOLE
     Dosage: 30 MG, QD
     Route: 048
  5. REFRESH PLUS [Concomitant]
     Active Substance: CARBOXYMETHYLCELLULOSE SODIUM
     Indication: DRY EYE
     Dosage: UNK
     Route: 047
  6. CYTOMEL [Concomitant]
     Active Substance: LIOTHYRONINE SODIUM
     Indication: THYROID DISORDER
     Dosage: 12.5 ?G, QD
     Route: 048
  7. RESTASIS [Suspect]
     Active Substance: CYCLOSPORINE
     Indication: DRY EYE
     Dosage: UNK, BID
     Route: 047
     Dates: start: 20170309
  8. RITE AID ARTIFICIAL TEARS [Concomitant]
     Indication: DRY EYE
     Dosage: UNK
     Route: 047
  9. TRIAMTERENE. [Concomitant]
     Active Substance: TRIAMTERENE
     Dosage: 37.5 MG, 4X/WEEK
     Route: 048
  10. ESTRACE [Concomitant]
     Active Substance: ESTRADIOL
     Dosage: 1 ML, 2X/WEEK
     Route: 061

REACTIONS (5)
  - Vision blurred [Not Recovered/Not Resolved]
  - Product quality issue [Unknown]
  - Visual impairment [Recovered/Resolved]
  - Eye pruritus [Not Recovered/Not Resolved]
  - Incorrect dose administered [Unknown]

NARRATIVE: CASE EVENT DATE: 20170309
